FAERS Safety Report 8826416 (Version 3)
Quarter: 2013Q1

REPORT INFORMATION
  Report Type: Report from Study
  Country: US (occurrence: US)
  Receive Date: 20121005
  Receipt Date: 20130327
  Transmission Date: 20140127
  Serious: Yes (Hospitalization)
  Sender: FDA-Public Use
  Company Number: PHHO2011US07887

PATIENT
  Age: 62 Year
  Sex: Male
  Weight: 137.9 kg

DRUGS (6)
  1. CERTICAN [Suspect]
     Indication: RENAL TRANSPLANT
     Dosage: 0.75 MG, Q12H
     Route: 048
     Dates: start: 20110413, end: 20110509
  2. PROGRAF [Suspect]
     Indication: RENAL TRANSPLANT
     Dosage: 3 MG, Q12H
     Route: 048
     Dates: start: 20110425, end: 20110502
  3. PROGRAF [Suspect]
     Dosage: UNK
     Dates: start: 20110502
  4. PREDNISONE [Suspect]
     Indication: RENAL TRANSPLANT
     Dosage: 15 MG, UNK
     Route: 048
     Dates: start: 20110427, end: 20110502
  5. ZAROXOLYN [Concomitant]
  6. THYMOGLOBULINE                          /FRA/ [Concomitant]
     Indication: RENAL TRANSPLANT

REACTIONS (2)
  - Renal tubular necrosis [Recovered/Resolved with Sequelae]
  - Drug ineffective [Not Recovered/Not Resolved]
